FAERS Safety Report 21973009 (Version 3)
Quarter: 2024Q4

REPORT INFORMATION
  Report Type: Spontaneous
  Country: US (occurrence: US)
  Receive Date: 20230209
  Receipt Date: 20241014
  Transmission Date: 20250114
  Serious: Yes (Other)
  Sender: NOVARTIS
  Company Number: US-002147023-NVSC2023US025198

PATIENT
  Age: 28 Year
  Sex: Female

DRUGS (5)
  1. LETROZOLE [Suspect]
     Active Substance: LETROZOLE
     Indication: Endometriosis
     Dosage: UNK
     Route: 048
     Dates: start: 202202
  2. NALTREXONE [Concomitant]
     Active Substance: NALTREXONE
     Indication: Pain
     Dosage: UNK, (LOW DOSE)
     Route: 048
     Dates: start: 202202
  3. HYDROXYZINE [Concomitant]
     Active Substance: HYDROXYZINE HYDROCHLORIDE
     Indication: Sleep disorder
     Dosage: UNK
     Route: 065
  4. HYDROXYZINE [Concomitant]
     Active Substance: HYDROXYZINE HYDROCHLORIDE
     Indication: Anxiety
  5. NORETHINDRONE [Concomitant]
     Active Substance: NORETHINDRONE
     Indication: Endometriosis
     Dosage: UNK
     Route: 048
     Dates: start: 202202

REACTIONS (7)
  - Rectal haemorrhage [Unknown]
  - Pain [Unknown]
  - Dermatitis [Unknown]
  - Muscle spasms [Unknown]
  - Mass [Unknown]
  - Contusion [Unknown]
  - Product use in unapproved indication [Unknown]
